FAERS Safety Report 4680447-9 (Version None)
Quarter: 2005Q2

REPORT INFORMATION
  Report Type: 
  Country: None (occurrence: None)
  Receive Date: 20050601
  Receipt Date: 20050519
  Transmission Date: 20051028
  Serious: Yes (Other)
  Sender: FDA-Public Use
  Company Number: DE_050515962

PATIENT
  Age: 11 Year
  Sex: Male
  Weight: 33 kg

DRUGS (2)
  1. STRATTERA [Suspect]
     Indication: ATTENTION DEFICIT/HYPERACTIVITY DISORDER
     Dosage: 40 MG DAY
     Dates: start: 20050329, end: 20050426
  2. CONCERTA (METHYLPHENIDARE HYDROCHLORIDE) [Concomitant]

REACTIONS (3)
  - AGGRESSION [None]
  - ALANINE AMINOTRANSFERASE INCREASED [None]
  - HYPERTENSION [None]
